FAERS Safety Report 12884161 (Version 1)
Quarter: 2016Q4

REPORT INFORMATION
  Report Type: Spontaneous
  Country: US (occurrence: US)
  Receive Date: 20161026
  Receipt Date: 20161026
  Transmission Date: 20170207
  Serious: No
  Sender: FDA-Public Use
  Company Number: US-ALEXION PHARMACEUTICALS INC.-A201608037

PATIENT
  Sex: Female

DRUGS (1)
  1. KANUMA [Suspect]
     Active Substance: SEBELIPASE ALFA
     Indication: LYSOSOMAL ACID LIPASE DEFICIENCY
     Dosage: UNK
     Route: 042
     Dates: start: 20160812

REACTIONS (5)
  - High density lipoprotein decreased [Unknown]
  - Low density lipoprotein increased [Unknown]
  - Liver function test increased [Unknown]
  - Treatment noncompliance [Unknown]
  - Blood triglycerides increased [Unknown]
